FAERS Safety Report 4941896-4 (Version None)
Quarter: 2006Q1

REPORT INFORMATION
  Report Type: 
  Country: None (occurrence: None)
  Receive Date: 20060307
  Receipt Date: 20060228
  Transmission Date: 20060701
  Serious: Yes (Other)
  Sender: FDA-Public Use
  Company Number: S06-USA-00671-01

PATIENT
  Age: 45 Year
  Sex: Female

DRUGS (5)
  1. LEVOTHROID [Suspect]
     Indication: HYPOTHYROIDISM
     Dosage: 50 MCG QD PO
     Route: 048
     Dates: start: 20051001, end: 20050101
  2. CEFUROXIME [Suspect]
     Indication: URINARY TRACT INFECTION
     Dates: start: 20050101, end: 20050101
  3. SYNTHROID [Concomitant]
  4. XANAX [Concomitant]
  5. ADVIL [Concomitant]

REACTIONS (4)
  - HYPERSENSITIVITY [None]
  - PHARYNGEAL OEDEMA [None]
  - URINARY TRACT INFECTION [None]
  - URTICARIA GENERALISED [None]
